FAERS Safety Report 6166654-7 (Version None)
Quarter: 2009Q2

REPORT INFORMATION
  Report Type: 
  Country: None (occurrence: None)
  Receive Date: 20090424
  Receipt Date: 20090414
  Transmission Date: 20091009
  Serious: Yes (Hospitalization)
  Sender: FDA-Public Use
  Company Number: MX-ELI_LILLY_AND_COMPANY-MX200812002892

PATIENT
  Age: 12 Year
  Sex: Male
  Weight: 63 kg

DRUGS (2)
  1. STRATTERA [Suspect]
     Indication: ATTENTION DEFICIT/HYPERACTIVITY DISORDER
     Dosage: 60 MG, UNKNOWN
     Route: 065
     Dates: start: 20080601
  2. TRILEPTAL [Concomitant]
     Dosage: 300 MG, DAILY (1/D)
     Route: 065

REACTIONS (9)
  - ABNORMAL BEHAVIOUR [None]
  - DIZZINESS [None]
  - EDUCATIONAL PROBLEM [None]
  - HEADACHE [None]
  - INTENTIONAL OVERDOSE [None]
  - NAUSEA [None]
  - SOCIAL PROBLEM [None]
  - SUICIDE ATTEMPT [None]
  - VOMITING [None]
